FAERS Safety Report 5985930-1 (Version None)
Quarter: 2008Q4

REPORT INFORMATION
  Report Type: 
  Country: None (occurrence: None)
  Receive Date: 20081204
  Receipt Date: 20081204
  Transmission Date: 20090506
  Serious: No
  Sender: FDA-Public Use
  Company Number: None

PATIENT
  Sex: Female
  Weight: 50.3493 kg

DRUGS (2)
  1. ABILITY 2 MG OTSUKA PHARM. TOKYO [Suspect]
     Indication: ANXIETY
     Dosage: 2 TABS LOR2 DAY PO
     Route: 048
     Dates: start: 20080307, end: 20080314
  2. ABILITY 2 MG OTSUKA PHARM. TOKYO [Suspect]
     Indication: DEPRESSION
     Dosage: 2 TABS LOR2 DAY PO
     Route: 048
     Dates: start: 20080307, end: 20080314

REACTIONS (2)
  - CONDITION AGGRAVATED [None]
  - DEPRESSION [None]
